FAERS Safety Report 15586751 (Version 1)
Quarter: 2018Q4

REPORT INFORMATION
  Report Type: Spontaneous
  Country: TN (occurrence: TN)
  Receive Date: 20181105
  Receipt Date: 20181105
  Transmission Date: 20190205
  Serious: Yes (Other)
  Sender: FDA-Public Use
  Company Number: TN-ABBVIE-18P-160-2538516-00

PATIENT
  Age: 2 Year
  Sex: Male

DRUGS (5)
  1. AUGMENTIN [Interacting]
     Active Substance: AMOXICILLIN\CLAVULANATE POTASSIUM
     Indication: PNEUMONIA
     Route: 065
     Dates: start: 201708
  2. DEPAKINE [Suspect]
     Active Substance: VALPROATE SODIUM
     Indication: ENCEPHALOPATHY
     Route: 065
     Dates: start: 201701
  3. DEPAKINE [Interacting]
     Active Substance: VALPROATE SODIUM
     Route: 065
     Dates: start: 201708
  4. DEPAKINE [Interacting]
     Active Substance: VALPROATE SODIUM
     Route: 065
     Dates: start: 201708
  5. IMIPENEM [Interacting]
     Active Substance: IMIPENEM
     Indication: PNEUMONIA
     Route: 065

REACTIONS (2)
  - Drug interaction [Recovered/Resolved]
  - Drug level decreased [Recovered/Resolved]
